FAERS Safety Report 24103732 (Version 2)
Quarter: 2024Q3

REPORT INFORMATION
  Report Type: Spontaneous
  Country: CA (occurrence: CA)
  Receive Date: 20240717
  Receipt Date: 20240724
  Transmission Date: 20241016
  Serious: Yes (Other)
  Sender: BRISTOL MYERS SQUIBB
  Company Number: CA-BRISTOL-MYERS SQUIBB COMPANY-2024-112644

PATIENT
  Age: 75 Year
  Sex: Female
  Weight: 74 kg

DRUGS (5)
  1. PACLITAXEL [Suspect]
     Active Substance: PACLITAXEL
     Indication: Product used for unknown indication
  2. PACLITAXEL [Concomitant]
     Active Substance: PACLITAXEL
     Indication: Ovarian cancer
     Route: 042
  3. ACRIVASTINE [Concomitant]
     Active Substance: ACRIVASTINE
  4. DEXAMETHASONE [Concomitant]
     Active Substance: DEXAMETHASONE
  5. FAMOTIDINE [Concomitant]
     Active Substance: FAMOTIDINE

REACTIONS (11)
  - Anaphylactic reaction [Recovered/Resolved]
  - Back pain [Recovered/Resolved]
  - Blood pressure immeasurable [Recovered/Resolved]
  - Dizziness [Recovered/Resolved]
  - Dyspnoea [Recovered/Resolved]
  - Feeling hot [Recovered/Resolved]
  - Adverse event [Recovered/Resolved]
  - Flushing [Recovered/Resolved]
  - Heart rate decreased [Recovered/Resolved]
  - Pallor [Recovered/Resolved]
  - Unresponsive to stimuli [Recovered/Resolved]
